FAERS Safety Report 6656929-7 (Version None)
Quarter: 2010Q1

REPORT INFORMATION
  Report Type: 
  Country: None (occurrence: None)
  Receive Date: 20100329
  Receipt Date: 20100329
  Transmission Date: 20100710
  Serious: Yes (Life-Threatening, Other)
  Sender: FDA-Public Use
  Company Number: None

PATIENT
  Age: 49 Year
  Sex: Female
  Weight: 54.4316 kg

DRUGS (2)
  1. NUVARING [Suspect]
     Indication: HORMONE REPLACEMENT THERAPY
     Dosage: VAG
     Route: 067
     Dates: start: 20100101, end: 20100324
  2. NUVARING [Suspect]
     Indication: HORMONE REPLACEMENT THERAPY
     Dosage: VAG
     Route: 067
     Dates: start: 20100324, end: 20100329

REACTIONS (5)
  - MEDICAL DEVICE COMPLICATION [None]
  - MEDICATION ERROR [None]
  - OEDEMA PERIPHERAL [None]
  - RASH GENERALISED [None]
  - TOXIC SHOCK SYNDROME [None]
